FAERS Safety Report 4986450-3 (Version None)
Quarter: 2006Q2

REPORT INFORMATION
  Report Type: 
  Country: None (occurrence: None)
  Receive Date: 20060424
  Receipt Date: 20060413
  Transmission Date: 20061013
  Serious: Yes (Hospitalization)
  Sender: FDA-Public Use
  Company Number: 200610502GDS

PATIENT
  Age: 16 Year
  Sex: Female

DRUGS (2)
  1. CIPROFLOXACIN [Suspect]
     Indication: CYSTITIS
     Dosage: 500 MG
     Dates: start: 20031215
  2. PAXIL [Concomitant]

REACTIONS (4)
  - CLOSTRIDIUM DIFFICILE COLITIS [None]
  - FATIGUE [None]
  - INFLUENZA LIKE ILLNESS [None]
  - WEIGHT DECREASED [None]
